FAERS Safety Report 21392543 (Version 3)
Quarter: 2022Q4

REPORT INFORMATION
  Report Type: Spontaneous
  Country: JP (occurrence: JP)
  Receive Date: 20220929
  Receipt Date: 20221025
  Transmission Date: 20230112
  Serious: Yes (Other)
  Sender: FDA-Public Use
  Company Number: JP-JNJFOC-20220952792

PATIENT
  Sex: Male

DRUGS (1)
  1. EVITHROM [Suspect]
     Active Substance: THROMBIN HUMAN
     Indication: Haemostasis
     Route: 065
     Dates: start: 2022, end: 2022

REACTIONS (2)
  - Post procedural haemorrhage [Recovered/Resolved]
  - Procedural complication [Recovered/Resolved]

NARRATIVE: CASE EVENT DATE: 20220101
